FAERS Safety Report 16826483 (Version 2)
Quarter: 2019Q3

REPORT INFORMATION
  Report Type: Spontaneous
  Country: FR (occurrence: FR)
  Receive Date: 20190919
  Receipt Date: 20190923
  Transmission Date: 20191005
  Serious: Yes (Hospitalization, Other)
  Sender: FDA-Public Use
  Company Number: FR-PFIZER INC-2019398420

PATIENT
  Age: 66 Year
  Sex: Female
  Weight: 60 kg

DRUGS (11)
  1. ZYVOXID [Suspect]
     Active Substance: LINEZOLID
     Dosage: UNK
     Route: 065
     Dates: start: 20190729
  2. ONDANSETRON HYDROCHLORIDE. [Suspect]
     Active Substance: ONDANSETRON HYDROCHLORIDE
     Dosage: UNK
     Route: 065
  3. VITAMIN K1 [Suspect]
     Active Substance: PHYTONADIONE
     Dosage: UNK
     Route: 065
     Dates: start: 20190805, end: 20190808
  4. TYGACIL [Suspect]
     Active Substance: TIGECYCLINE
     Dosage: UNK
     Route: 065
     Dates: start: 20190729, end: 20190805
  5. PARACETAMOL [Suspect]
     Active Substance: ACETAMINOPHEN
     Dosage: UNK
     Route: 065
  6. LANSOPRAZOLE. [Suspect]
     Active Substance: LANSOPRAZOLE
     Dosage: UNK
     Route: 065
  7. CEFOXITIN SODIUM [Suspect]
     Active Substance: CEFOXITIN SODIUM
     Dosage: UNK
     Route: 065
  8. AMIKACINE [AMIKACIN] [Suspect]
     Active Substance: AMIKACIN
     Dosage: UNK
     Route: 065
     Dates: start: 20190726
  9. TIORFAN [Suspect]
     Active Substance: RACECADOTRIL
     Dosage: UNK
     Route: 065
     Dates: start: 20190801, end: 20190808
  10. IMOVANE [Suspect]
     Active Substance: ZOPICLONE
     Dosage: UNK
     Route: 065
     Dates: start: 20190729, end: 20190805
  11. NEFOPAM HYDROCHLORIDE [Suspect]
     Active Substance: NEFOPAM HYDROCHLORIDE
     Dosage: UNK
     Route: 065
     Dates: start: 20190801

REACTIONS (1)
  - Pancreatitis acute [Not Recovered/Not Resolved]

NARRATIVE: CASE EVENT DATE: 20190805
